FAERS Safety Report 15439682 (Version 2)
Quarter: 2018Q3

REPORT INFORMATION
  Report Type: Spontaneous
  Country: US (occurrence: US)
  Receive Date: 20180928
  Receipt Date: 20180929
  Transmission Date: 20181010
  Serious: No
  Sender: FDA-Public Use
  Company Number: US-JNJFOC-20180919181

PATIENT
  Sex: Male
  Weight: 74.84 kg

DRUGS (3)
  1. NIZORAL A?D [Suspect]
     Active Substance: KETOCONAZOLE
     Indication: DRUG THERAPY
     Route: 061
  2. NIZORAL A?D [Suspect]
     Active Substance: KETOCONAZOLE
     Indication: DRUG THERAPY
     Route: 061
  3. ROGAINE [Concomitant]
     Active Substance: MINOXIDIL
     Route: 065

REACTIONS (3)
  - Rash [Not Recovered/Not Resolved]
  - Inappropriate schedule of drug administration [Unknown]
  - Rash macular [Not Recovered/Not Resolved]
